FAERS Safety Report 5445170-1 (Version None)
Quarter: 2007Q3

REPORT INFORMATION
  Report Type: 
  Country: None (occurrence: None)
  Receive Date: 20070730
  Receipt Date: 20070529
  Transmission Date: 20080115
  Serious: Yes (Death)
  Sender: FDA-Public Use
  Company Number: 239516

PATIENT
  Age: 62 Year
  Sex: Male

DRUGS (1)
  1. RITUXAN [Suspect]
     Indication: B-CELL LYMPHOMA

REACTIONS (2)
  - RENAL FAILURE [None]
  - TUMOUR LYSIS SYNDROME [None]
